FAERS Safety Report 9153131 (Version 2)
Quarter: 2013Q2

REPORT INFORMATION
  Report Type: Spontaneous
  Country: JP (occurrence: JP)
  Receive Date: 20130311
  Receipt Date: 20130401
  Transmission Date: 20140414
  Serious: Yes (Death)
  Sender: FDA-Public Use
  Company Number: JP-009507513-1303JPN003010

PATIENT
  Age: 70 Year
  Sex: Male

DRUGS (1)
  1. REMERON [Suspect]
     Indication: IRRITABILITY
     Dosage: 7.5 MG, QD
     Route: 048
     Dates: start: 201302

REACTIONS (2)
  - Completed suicide [Fatal]
  - Wrong technique in drug usage process [Unknown]
